FAERS Safety Report 5763866-9 (Version None)
Quarter: 2008Q2

REPORT INFORMATION
  Report Type: 
  Country: None (occurrence: None)
  Receive Date: 20080606
  Receipt Date: 20080606
  Transmission Date: 20081010
  Serious: Yes (Other)
  Sender: FDA-Public Use
  Company Number: None

PATIENT
  Sex: Female
  Weight: 82.5547 kg

DRUGS (2)
  1. MAGNEVIST [Suspect]
     Indication: BRAIN NEOPLASM
     Dosage: 17CC IV
     Route: 042
     Dates: start: 20080521, end: 20080521
  2. MAGNEVIST [Suspect]
     Indication: NUCLEAR MAGNETIC RESONANCE IMAGING BRAIN
     Dosage: 17CC IV
     Route: 042
     Dates: start: 20080521, end: 20080521

REACTIONS (4)
  - ARTHRALGIA [None]
  - DIZZINESS [None]
  - ERYTHEMA [None]
  - MUSCULOSKELETAL STIFFNESS [None]
